FAERS Safety Report 9055322 (Version 1)
Quarter: 2013Q1

REPORT INFORMATION
  Report Type: Report from Study
  Country: US (occurrence: US)
  Receive Date: 20130206
  Receipt Date: 20130206
  Transmission Date: 20140127
  Serious: Yes (Other)
  Sender: FDA-Public Use
  Company Number: US-ROCHE-1188095

PATIENT
  Age: 59 Year
  Sex: Male
  Weight: 122.9 kg

DRUGS (2)
  1. BEVACIZUMAB [Suspect]
     Indication: RENAL CELL CARCINOMA
     Dosage: DOSE:5MG/KG IV OVER 30-90 MIN ON DAYS 1 AND 15 DATE OF LAST DOSE: 16/SEP/2010
     Route: 042
     Dates: start: 20100211
  2. SORAFENIB [Suspect]
     Indication: RENAL CELL CARCINOMA
     Dosage: 200MG PO BID ON DAYS 1-5, 8-12, 15-19 AND 22-26
     Route: 048
     Dates: start: 20100211, end: 20101011

REACTIONS (1)
  - Anal fissure [Recovered/Resolved]
